FAERS Safety Report 11080752 (Version 1)
Quarter: 2015Q2

REPORT INFORMATION
  Report Type: Spontaneous
  Country: US (occurrence: None)
  Receive Date: 20150430
  Receipt Date: 20150430
  Transmission Date: 20150821
  Serious: Yes (Disabling)
  Sender: FDA-Public Use
  Company Number: None

PATIENT
  Age: 47 Year
  Sex: Female
  Weight: 58.06 kg

DRUGS (11)
  1. COMPOUNDED THYROID [Concomitant]
  2. HYOSCYAMINE [Concomitant]
     Active Substance: HYOSCYAMINE
  3. VITAMIN B COMPLEX [Concomitant]
     Active Substance: CYANOCOBALAMIN\DEXPANTHENOL\NIACINAMIDE\PYRIDOXINE HYDROCHLORIDE\RIBOFLAVIN 5^-PHOSPHATE SODIUM\THIAMINE HYDROCHLORIDE\VITAMIN B COMPLEX
  4. TYLENOL [Concomitant]
     Active Substance: ACETAMINOPHEN
  5. CIPROFLOXACIN HCL [Suspect]
     Active Substance: CIPROFLOXACIN HYDROCHLORIDE
     Indication: URINARY TRACT INFECTION
     Dosage: 1 TABLET, TWICE DAILY, TAKEN BY MOUTH
     Route: 048
     Dates: start: 20150225, end: 20150301
  6. IBUPROFEN. [Concomitant]
     Active Substance: IBUPROFEN
  7. COMPOUNDED HORMONES [Concomitant]
  8. AMITRIPTYLINE [Concomitant]
     Active Substance: AMITRIPTYLINE
  9. MULTIVITAMIN [Concomitant]
     Active Substance: VITAMINS
  10. L-LYSINE BENADRYL [Concomitant]
  11. CIPROFLOXACIN CHELATED CAL-MAG [Concomitant]

REACTIONS (10)
  - Mood swings [None]
  - Pain [None]
  - Hypothyroidism [None]
  - Family stress [None]
  - Pain in extremity [None]
  - Musculoskeletal pain [None]
  - Feeling abnormal [None]
  - Activities of daily living impaired [None]
  - Fatigue [None]
  - Arthralgia [None]

NARRATIVE: CASE EVENT DATE: 20150228
